FAERS Safety Report 7556599-X (Version None)
Quarter: 2011Q2

REPORT INFORMATION
  Report Type: 
  Country: None (occurrence: None)
  Receive Date: 20110616
  Receipt Date: 20110616
  Transmission Date: 20111010
  Serious: Yes (Other)
  Sender: FDA-Public Use
  Company Number: None

PATIENT
  Sex: Female
  Weight: 67.1324 kg

DRUGS (2)
  1. LOSARTAN POTASSIUM [Suspect]
     Indication: MITRAL VALVE PROLAPSE
     Dosage: 50 MG BID PO
     Route: 048
     Dates: start: 20110519, end: 20110608
  2. LOSARTAN POTASSIUM [Suspect]
     Indication: INCREASED VENTRICULAR AFTERLOAD
     Dosage: 50 MG BID PO
     Route: 048
     Dates: start: 20110519, end: 20110608

REACTIONS (3)
  - DRUG INEFFECTIVE [None]
  - PRODUCT SUBSTITUTION ISSUE [None]
  - BLOOD PRESSURE SYSTOLIC INCREASED [None]
